FAERS Safety Report 8869678 (Version 2)
Quarter: 2012Q4

REPORT INFORMATION
  Report Type: 
  Country: US (occurrence: None)
  Receive Date: 20121031
  Receipt Date: 20121214
  Transmission Date: 20130627
  Serious: Yes (Life-Threatening, Hospitalization)
  Sender: FDA-Public Use
  Company Number: None

PATIENT
  Age: 47 Year
  Sex: Female
  Weight: 65.77 kg

DRUGS (1)
  1. TRIAMCINOLONE [Suspect]
     Indication: DEGENERATIVE DISC DISEASE
     Dosage: 4 doses 1 Im
     Route: 030
     Dates: start: 20120906, end: 20120906

REACTIONS (9)
  - Malaise [None]
  - Pain in extremity [None]
  - Cellulitis [None]
  - Bacteraemia [None]
  - Palpitations [None]
  - Blood pressure increased [None]
  - Urticaria [None]
  - Memory impairment [None]
  - Sepsis [None]
